FAERS Safety Report 22870516 (Version 2)
Quarter: 2024Q4

REPORT INFORMATION
  Report Type: Spontaneous
  Country: US (occurrence: US)
  Receive Date: 20230828
  Receipt Date: 20241129
  Transmission Date: 20250115
  Serious: Yes (Death, Hospitalization, Other)
  Sender: DECIPHERA PHARMACEUTICALS
  Company Number: US-DECIPHERA PHARMACEUTICALS LLC-2023US000764

PATIENT
  Age: 71 Year
  Sex: Female

DRUGS (11)
  1. QINLOCK [Suspect]
     Active Substance: RIPRETINIB
     Indication: Gastrointestinal stromal tumour
     Dosage: 150 MILLIGRAM, QD
     Route: 048
  2. CABOMETYX [Suspect]
     Active Substance: CABOZANTINIB S-MALATE
     Indication: Gastrointestinal stromal tumour
     Dosage: 40 MILLIGRAM, QD
     Route: 048
     Dates: start: 20230407, end: 202304
  3. CALCIUM ASCORBATE [Concomitant]
     Active Substance: CALCIUM ASCORBATE
     Indication: Product used for unknown indication
     Dosage: UNK
  4. VITAMIN D3 [Concomitant]
     Active Substance: CHOLECALCIFEROL
     Indication: Product used for unknown indication
     Dosage: UNK
  5. LASIX [Concomitant]
     Active Substance: FUROSEMIDE
     Indication: Product used for unknown indication
     Dosage: UNK
  6. VITAMINS NOS [Concomitant]
     Active Substance: VITAMINS
     Indication: Product used for unknown indication
     Dosage: UNK
  7. POTASSIUM CHLORIDE [Concomitant]
     Active Substance: POTASSIUM CHLORIDE
     Indication: Product used for unknown indication
     Dosage: UNK
  8. DEXTROSE [Concomitant]
     Active Substance: DEXTROSE MONOHYDRATE
     Indication: Product used for unknown indication
     Dosage: UNK
  9. EUCERIN [OMEGA-6 FATTY ACIDS] [Concomitant]
     Indication: Product used for unknown indication
  10. DEXTROSE MONOHYDRATE [Concomitant]
     Active Substance: DEXTROSE MONOHYDRATE
     Indication: Product used for unknown indication
  11. SIMETHICONE (DIMETHICONE) [Concomitant]
     Active Substance: DIMETHICONE
     Indication: Product used for unknown indication

REACTIONS (34)
  - Malignant neoplasm progression [Fatal]
  - Metastases to liver [Fatal]
  - Failure to thrive [Unknown]
  - Pericardial effusion [Unknown]
  - Cardiac tamponade [Unknown]
  - Pericarditis [Unknown]
  - Fistula of small intestine [Unknown]
  - Duodenal perforation [Unknown]
  - Tumour invasion [Unknown]
  - Malignant biliary obstruction [Unknown]
  - Hyperbilirubinaemia [Unknown]
  - Inappropriate antidiuretic hormone secretion [Unknown]
  - Pyuria [Unknown]
  - Jaundice [Unknown]
  - Chromaturia [Unknown]
  - Illness [Unknown]
  - Abdominal mass [Unknown]
  - Ocular icterus [Unknown]
  - Bilirubin conjugated increased [Unknown]
  - Blood albumin decreased [Unknown]
  - Blood glucose increased [Unknown]
  - Aspartate aminotransferase increased [Unknown]
  - Abdominal distension [Unknown]
  - Hyponatraemia [Unknown]
  - Blood alkaline phosphatase increased [Unknown]
  - Blood sodium decreased [Unknown]
  - Tachycardia [Unknown]
  - Hypertension [Unknown]
  - Dry skin [Unknown]
  - Abdominal pain [Unknown]
  - Oedema peripheral [Unknown]
  - Dyspnoea [Unknown]
  - Alanine aminotransferase increased [Unknown]
  - Off label use [Unknown]

NARRATIVE: CASE EVENT DATE: 20230417
